FAERS Safety Report 10160067 (Version 1)
Quarter: 2014Q2

REPORT INFORMATION
  Report Type: Spontaneous
  Country: US (occurrence: US)
  Receive Date: 20140508
  Receipt Date: 20140508
  Transmission Date: 20141212
  Serious: No
  Sender: FDA-Public Use
  Company Number: US-GLAXOSMITHKLINE-A1061543A

PATIENT
  Age: 77 Year
  Sex: Female

DRUGS (1)
  1. TYKERB [Suspect]
     Indication: BREAST CANCER
     Dosage: 750MG PER DAY
     Route: 048
     Dates: start: 20140128

REACTIONS (4)
  - Dizziness [Unknown]
  - Adverse event [Unknown]
  - Ill-defined disorder [Unknown]
  - Emergency care examination [Unknown]
